FAERS Safety Report 5894308-0 (Version None)
Quarter: 2008Q3

REPORT INFORMATION
  Report Type: 
  Country: None (occurrence: None)
  Receive Date: 20080923
  Receipt Date: 20080418
  Transmission Date: 20090109
  Serious: No
  Sender: FDA-Public Use
  Company Number: US-ASTRAZENECA-2008UW08017

PATIENT
  Age: 50 Year
  Sex: Male
  Weight: 113.9 kg

DRUGS (13)
  1. SEROQUEL [Suspect]
     Indication: SLEEP APNOEA SYNDROME
     Route: 048
  2. SEROQUEL [Suspect]
     Route: 048
  3. SEROQUEL [Suspect]
     Route: 048
  4. SEROQUEL [Suspect]
     Route: 048
  5. SEROQUEL [Suspect]
     Route: 048
  6. PREVACID [Concomitant]
  7. SINGULAIR [Concomitant]
  8. ZETIA [Concomitant]
  9. NEURONTIN [Concomitant]
  10. EFFEXOR [Concomitant]
  11. VICODIN [Concomitant]
  12. SOMA [Concomitant]
  13. AMBIEN [Concomitant]

REACTIONS (2)
  - BLOOD PROLACTIN INCREASED [None]
  - WEIGHT INCREASED [None]
